FAERS Safety Report 13278218 (Version 1)
Quarter: 2017Q1

REPORT INFORMATION
  Report Type: Spontaneous
  Country: PL (occurrence: PL)
  Receive Date: 20170228
  Receipt Date: 20170228
  Transmission Date: 20170428
  Serious: Yes (Life-Threatening, Hospitalization)
  Sender: FDA-Public Use
  Company Number: PL-JNJFOC-20170226205

PATIENT
  Age: 80 Year
  Sex: Female
  Weight: 63 kg

DRUGS (10)
  1. BETAHISTINE DIHYDROCHLORIDE [Concomitant]
     Active Substance: BETAHISTINE
     Indication: DIZZINESS
     Route: 048
     Dates: start: 20161215
  2. CORONAL [Concomitant]
     Indication: HYPERTENSION
     Route: 048
     Dates: start: 2014
  3. XARELTO [Suspect]
     Active Substance: RIVAROXABAN
     Indication: MYOCARDIAL ISCHAEMIA
     Route: 048
     Dates: start: 20161212, end: 20161224
  4. XARELTO [Suspect]
     Active Substance: RIVAROXABAN
     Indication: VENOUS THROMBOSIS
     Route: 048
     Dates: start: 20161212, end: 20161224
  5. POLOPIRYNA [Concomitant]
     Active Substance: ASPIRIN
     Indication: NASOPHARYNGITIS
     Route: 065
  6. RAMIPRIL. [Concomitant]
     Active Substance: RAMIPRIL
     Indication: HYPERTENSION
     Route: 048
     Dates: start: 2014
  7. MAGNESIUM W/VITAMIN B6 [Concomitant]
     Indication: MUSCLE SPASMS
     Route: 048
     Dates: start: 2015
  8. TERAZOSIN HYDROCHLORIDE. [Concomitant]
     Active Substance: TERAZOSIN HYDROCHLORIDE
     Indication: URINARY INCONTINENCE
     Route: 048
     Dates: start: 2012
  9. LUMIGAN [Concomitant]
     Active Substance: BIMATOPROST
     Indication: CATARACT
     Route: 065
     Dates: start: 2013
  10. ACARD [Concomitant]
     Active Substance: ASPIRIN
     Indication: BLOOD CHOLESTEROL
     Route: 048
     Dates: start: 2012

REACTIONS (5)
  - Epistaxis [Recovered/Resolved]
  - Blood urine present [Recovered/Resolved]
  - Mouth haemorrhage [Recovered/Resolved]
  - Asthenia [Recovered/Resolved]
  - Blood pressure increased [Recovered/Resolved]

NARRATIVE: CASE EVENT DATE: 20161224
